FAERS Safety Report 4733115-9 (Version None)
Quarter: 2005Q3

REPORT INFORMATION
  Report Type: 
  Country: None (occurrence: None)
  Receive Date: 20050803
  Receipt Date: 20050727
  Transmission Date: 20060218
  Serious: Yes (Hospitalization)
  Sender: FDA-Public Use
  Company Number: PHNU2005DE02695

PATIENT
  Sex: Female

DRUGS (4)
  1. ZOMETA [Suspect]
     Indication: BREAST CANCER METASTATIC
     Dosage: 4 MG, QMO
     Route: 042
     Dates: start: 20020101, end: 20050701
  2. FEMARA [Concomitant]
     Indication: BREAST CANCER METASTATIC
     Dates: start: 20050401
  3. XELODA [Concomitant]
  4. ISCADOR [Concomitant]

REACTIONS (6)
  - ASEPTIC NECROSIS BONE [None]
  - IMPAIRED HEALING [None]
  - OSTECTOMY [None]
  - OSTEOMYELITIS [None]
  - TOOTH DISORDER [None]
  - TOOTH EXTRACTION [None]
